FAERS Safety Report 5566416-5 (Version None)
Quarter: 2007Q4

REPORT INFORMATION
  Report Type: 
  Country: None (occurrence: None)
  Receive Date: 20071217
  Receipt Date: 20071217
  Transmission Date: 20080405
  Serious: Yes (Hospitalization)
  Sender: FDA-Public Use
  Company Number: None

PATIENT
  Age: 86 Year
  Sex: Female
  Weight: 62 kg

DRUGS (4)
  1. XELODA [Suspect]
     Indication: COLON CANCER
     Dosage: 302 MG DAILY X 7 DAYS PO
     Route: 048
     Dates: start: 20071129, end: 20071204
  2. BEVACIZUMAB, 5 MG/K, GENENTECH [Suspect]
     Indication: COLON CANCER
     Dosage: 1800 MG EVERY 2 WEEKS IV
     Route: 042
     Dates: start: 20071129
  3. CARDIZEM CD [Concomitant]
  4. DIOVAN [Concomitant]

REACTIONS (4)
  - BRADYCARDIA [None]
  - HYPOKALAEMIA [None]
  - HYPOTENSION [None]
  - SYNCOPE [None]
